FAERS Safety Report 6761356-8 (Version None)
Quarter: 2010Q2

REPORT INFORMATION
  Report Type: 
  Country: None (occurrence: None)
  Receive Date: 20100607
  Receipt Date: 20100526
  Transmission Date: 20101027
  Serious: Yes (Other)
  Sender: FDA-Public Use
  Company Number: 2010AL003182

PATIENT
  Age: 79 Year
  Sex: Female

DRUGS (7)
  1. AMLODIPINE BESYLATE [Suspect]
     Indication: HYPERTENSION
     Dosage: 5 MG; QD; PO
     Route: 048
  2. ALBYL [Concomitant]
  3. PLAVIX [Concomitant]
  4. LIPITOR [Concomitant]
  5. MONOKET [Concomitant]
  6. NITROMEX [Concomitant]
  7. SELO-ZOK [Concomitant]

REACTIONS (3)
  - ARTERIAL DISORDER [None]
  - GINGIVAL BLEEDING [None]
  - MYOCARDIAL INFARCTION [None]
